FAERS Safety Report 25805014 (Version 1)
Quarter: 2025Q3

REPORT INFORMATION
  Report Type: Spontaneous
  Country: US (occurrence: US)
  Receive Date: 20250916
  Receipt Date: 20250916
  Transmission Date: 20251021
  Serious: Yes (Other)
  Sender: CHEPLAPHARM
  Company Number: US-CHEPLA-2025010811

PATIENT
  Age: 49 Year
  Sex: Female

DRUGS (10)
  1. CAPECITABINE [Suspect]
     Active Substance: CAPECITABINE
     Dosage: 25 DAYS OF XELODA
     Route: 048
     Dates: start: 202310
  2. FLUOROURACIL\IRINOTECAN\LEUCOVORIN\OXALIPLATIN [Suspect]
     Active Substance: FLUOROURACIL\IRINOTECAN\LEUCOVORIN\OXALIPLATIN
     Dates: start: 202308, end: 202309
  3. FLUOROURACIL\IRINOTECAN\LEUCOVORIN\OXALIPLATIN [Suspect]
     Active Substance: FLUOROURACIL\IRINOTECAN\LEUCOVORIN\OXALIPLATIN
     Dates: start: 20231112
  4. ZOLDONRASIB [Concomitant]
     Active Substance: ZOLDONRASIB
     Dates: start: 20240724
  5. ZOLDONRASIB [Concomitant]
     Active Substance: ZOLDONRASIB
  6. ZOLDONRASIB [Concomitant]
     Active Substance: ZOLDONRASIB
  7. ABRAXANE [Concomitant]
     Active Substance: PACLITAXEL
     Dates: start: 20250619
  8. ABRAXANE [Concomitant]
     Active Substance: PACLITAXEL
     Dates: start: 20250826
  9. GEMCITABINE [Concomitant]
     Active Substance: GEMCITABINE
     Dates: start: 20250619
  10. GEMCITABINE [Concomitant]
     Active Substance: GEMCITABINE
     Dates: start: 20250826

REACTIONS (1)
  - Metastases to peritoneum [Unknown]

NARRATIVE: CASE EVENT DATE: 20240628
